FAERS Safety Report 6006810-1 (Version None)
Quarter: 2008Q4

REPORT INFORMATION
  Report Type: 
  Country: None (occurrence: None)
  Receive Date: 20081217
  Receipt Date: 20080904
  Transmission Date: 20090506
  Serious: No
  Sender: FDA-Public Use
  Company Number: US-ASTRAZENECA-2006UW19263

PATIENT
  Age: 68 Year
  Sex: Female
  Weight: 78 kg

DRUGS (6)
  1. CRESTOR [Suspect]
     Indication: BLOOD CHOLESTEROL INCREASED
     Route: 048
     Dates: start: 20060905, end: 20080801
  2. CRESTOR [Suspect]
     Route: 048
     Dates: start: 20080801
  3. SYNTHROID [Concomitant]
  4. VITAMINS [Concomitant]
  5. FUROSEMIDE [Concomitant]
  6. HYDROXYZINE [Concomitant]

REACTIONS (6)
  - ABDOMINAL DISCOMFORT [None]
  - ABDOMINAL DISTENSION [None]
  - ARTHRALGIA [None]
  - DYSPEPSIA [None]
  - FLUID RETENTION [None]
  - WEIGHT INCREASED [None]
